FAERS Safety Report 13905703 (Version 1)
Quarter: 2017Q3

REPORT INFORMATION
  Report Type: Spontaneous
  Country: US (occurrence: US)
  Receive Date: 20170825
  Receipt Date: 20170825
  Transmission Date: 20171127
  Serious: No
  Sender: FDA-Public Use
  Company Number: US-TARO-2016TAR00884

PATIENT
  Sex: Female
  Weight: 72.56 kg

DRUGS (2)
  1. CLOBETASOL PROPIONATE OINTMENT USP 0.05% [Suspect]
     Active Substance: CLOBETASOL PROPIONATE
     Indication: ECZEMA
     Dosage: TINY LITTLE BIT ON HER FINGERTIP, AS NEEDED
     Route: 061
     Dates: start: 2006
  2. ATENOLOL. [Concomitant]
     Active Substance: ATENOLOL
     Dosage: 50 MG, 1X/DAY
     Dates: start: 1995

REACTIONS (1)
  - Pigmentation disorder [Recovering/Resolving]
